FAERS Safety Report 6435734-0 (Version None)
Quarter: 2009Q4

REPORT INFORMATION
  Report Type: 
  Country: None (occurrence: None)
  Receive Date: 20091110
  Receipt Date: 20080806
  Transmission Date: 20100525
  Serious: No
  Sender: FDA-Public Use
  Company Number: AECAN200800165

PATIENT
  Age: 84 Year
  Sex: Male
  Weight: 65 kg

DRUGS (2)
  1. GAMUNEX [Suspect]
     Indication: PNEUMONIA
     Dosage: 2.5 GM;QD;IV
     Route: 042
     Dates: start: 20070620, end: 20070620
  2. GAMUNEX [Suspect]
     Indication: PNEUMONIA
     Dosage: 20 GM;QD;IV
     Route: 042
     Dates: start: 20070620, end: 20070620

REACTIONS (5)
  - DYSPNOEA [None]
  - HYPOTENSION [None]
  - INFUSION RELATED REACTION [None]
  - NAUSEA [None]
  - RESPIRATORY RATE INCREASED [None]
